FAERS Safety Report 7683574-7 (Version None)
Quarter: 2011Q3

REPORT INFORMATION
  Report Type: 
  Country: None (occurrence: None)
  Receive Date: 20110815
  Receipt Date: 20110731
  Transmission Date: 20111222
  Serious: Yes (Hospitalization)
  Sender: FDA-Public Use
  Company Number: PHHY2011AU69148

PATIENT
  Age: 10 Year
  Sex: Male

DRUGS (12)
  1. DAPSONE [Suspect]
     Indication: LEPROSY
  2. AMINOSALICYLIC ACID [Suspect]
     Indication: BORDERLINE LEPROSY
  3. MOXIFLOXACIN [Concomitant]
     Indication: BORDERLINE LEPROSY
     Route: 048
  4. ETHAMBUTOL HYDROCHLORIDE [Concomitant]
     Indication: BORDERLINE LEPROSY
     Dosage: UNK
  5. RIFAMPICIN [Concomitant]
     Indication: BORDERLINE LEPROSY
  6. PENICILLIN [Concomitant]
     Indication: PROPHYLAXIS
  7. CYCLOSERINE [Suspect]
     Indication: BORDERLINE LEPROSY
  8. AMIKACIN [Concomitant]
     Indication: BORDERLINE LEPROSY
     Dosage: UNK
     Route: 042
  9. ISONIAZID [Concomitant]
     Indication: BORDERLINE LEPROSY
  10. PYRIDOXINE HCL [Concomitant]
     Indication: BORDERLINE LEPROSY
  11. CLOFAZIMINE [Suspect]
     Indication: BORDERLINE LEPROSY
  12. PYRAZINAMIDE [Concomitant]
     Indication: BORDERLINE LEPROSY

REACTIONS (9)
  - GLOMERULONEPHRITIS ACUTE [None]
  - HAEMATURIA [None]
  - HYPERTENSION [None]
  - PROTEINURIA [None]
  - OEDEMA PERIPHERAL [None]
  - RENAL IMPAIRMENT [None]
  - PULMONARY OEDEMA [None]
  - TYPE 2 LEPRA REACTION [None]
  - ASCITES [None]
